FAERS Safety Report 12681738 (Version 2)
Quarter: 2016Q4

REPORT INFORMATION
  Report Type: Spontaneous
  Country: BR (occurrence: BR)
  Receive Date: 20160824
  Receipt Date: 20161208
  Transmission Date: 20170207
  Serious: Yes (Other)
  Sender: FDA-Public Use
  Company Number: BR-SHIRE-BR201610920

PATIENT
  Age: 1 Year
  Sex: Male
  Weight: 24 kg

DRUGS (1)
  1. ELAPRASE [Suspect]
     Active Substance: IDURSULFASE
     Indication: MUCOPOLYSACCHARIDOSIS II
     Dosage: 0.5 MG/KG, 1X/WEEK
     Route: 041
     Dates: start: 200911

REACTIONS (7)
  - Apnoea [Unknown]
  - Subdural haematoma [Unknown]
  - Iron deficiency anaemia [Recovering/Resolving]
  - Tonsillar disorder [Recovered/Resolved]
  - Adenoidal disorder [Recovered/Resolved]
  - Deafness [Unknown]
  - Drug administered to patient of inappropriate age [Recovered/Resolved]

NARRATIVE: CASE EVENT DATE: 200911
